FAERS Safety Report 9676402 (Version 2)
Quarter: 2013Q4

REPORT INFORMATION
  Report Type: Spontaneous
  Country: GB (occurrence: GB)
  Receive Date: 20131107
  Receipt Date: 20131113
  Transmission Date: 20140711
  Serious: Yes (Other)
  Sender: FDA-Public Use
  Company Number: GB-ACTAVIS-2013-20450

PATIENT
  Age: 12 Year
  Sex: Female

DRUGS (3)
  1. SALBUTAMOL (UNKNOWN) [Suspect]
     Indication: ASTHMA
     Dosage: 1 PUFF, PRN STRENGTH: 200 MCG
     Route: 055
     Dates: start: 20130617
  2. VENTOLIN                           /00139501/ [Concomitant]
     Indication: PRODUCT USED FOR UNKNOWN INDICATION
     Dosage: 2 PUFF, QID STRENGTH: 100 MCG
     Route: 055
     Dates: start: 20120614
  3. BUDESONIDE [Concomitant]
     Indication: PRODUCT USED FOR UNKNOWN INDICATION
     Dosage: 1 PUFF TWICE A DAY; STRENGTH: 100 MCG
     Route: 055
     Dates: start: 20130822

REACTIONS (5)
  - Drug ineffective [Recovered/Resolved]
  - Device malfunction [Unknown]
  - Product quality issue [Unknown]
  - Device occlusion [Unknown]
  - Product physical issue [Unknown]
